FAERS Safety Report 6038952-9 (Version None)
Quarter: 2009Q1

REPORT INFORMATION
  Report Type: 
  Country: None (occurrence: None)
  Receive Date: 20090115
  Receipt Date: 20090108
  Transmission Date: 20090719
  Serious: Yes (Other)
  Sender: FDA-Public Use
  Company Number: US-BAYER-200840805NA

PATIENT
  Age: 27 Year
  Sex: Male

DRUGS (2)
  1. AVELOX [Suspect]
     Indication: FOLLICULITIS
     Route: 048
     Dates: start: 20081001
  2. ALBUTEROL [Concomitant]

REACTIONS (4)
  - ANAPHYLACTIC REACTION [None]
  - BLOOD PRESSURE ORTHOSTATIC [None]
  - PRURITUS [None]
  - RESPIRATORY DISTRESS [None]
